FAERS Safety Report 10497610 (Version 1)
Quarter: 2014Q4

REPORT INFORMATION
  Report Type: Spontaneous
  Country: US (occurrence: US)
  Receive Date: 20141006
  Receipt Date: 20141006
  Transmission Date: 20150528
  Serious: Yes (Other)
  Sender: FDA-Public Use
  Company Number: US-ELI_LILLY_AND_COMPANY-US201410000139

PATIENT
  Age: 60 Year
  Sex: Female

DRUGS (2)
  1. ALIMTA [Suspect]
     Active Substance: PEMETREXED DISODIUM
     Indication: NON-SMALL CELL LUNG CANCER
  2. ALIMTA [Suspect]
     Active Substance: PEMETREXED DISODIUM
     Indication: MALIGNANT MELANOMA

REACTIONS (2)
  - Malignant neoplasm progression [Unknown]
  - Oedema peripheral [Recovered/Resolved]
